FAERS Safety Report 9641877 (Version 1)
Quarter: 2013Q4

REPORT INFORMATION
  Report Type: Spontaneous
  Country: GB (occurrence: None)
  Receive Date: 20131021
  Receipt Date: 20131021
  Transmission Date: 20140711
  Serious: Yes (Other)
  Sender: FDA-Public Use
  Company Number: KAD201310-001362

PATIENT
  Age: 57 Year
  Sex: Female

DRUGS (3)
  1. INFERGEN [Suspect]
     Indication: HEPATITIS C
     Dosage: INJECTION, 1 DF, ONCE WEEKLY, SUBCUTANEOUS
     Route: 058
     Dates: start: 20121107
  2. RIBAVIRIN [Suspect]
     Indication: HEPATITIS C
     Dosage: 3 DF ONCE WEEKLY
     Dates: start: 20121107
  3. INCIVO (TELAPREVIR) [Suspect]
     Indication: HEPATITIS C
     Route: 048
     Dates: start: 20121107

REACTIONS (5)
  - Anaemia [None]
  - Fatigue [None]
  - Anal pruritus [None]
  - Proctalgia [None]
  - Pruritus [None]
